FAERS Safety Report 25237917 (Version 2)
Quarter: 2025Q2

REPORT INFORMATION
  Report Type: Report from Study
  Country: FR (occurrence: FR)
  Receive Date: 20250425
  Receipt Date: 20250609
  Transmission Date: 20250716
  Serious: No
  Sender: SANDOZ
  Company Number: FR-SANDOZ-SDZ2025FR026074

PATIENT
  Age: 6 Year
  Sex: Male

DRUGS (3)
  1. OMNITROPE [Suspect]
     Active Substance: SOMATROPIN
     Indication: Product used for unknown indication
     Dosage: 0.3 MG, QD WEEK 1: 0,3 MG, WEEK 2: 0,4MG, WEEK 3:  0,5 MG THEN 0,6MG PER DAY 7/
     Route: 058
     Dates: start: 20240409
  2. OMNITROPE [Suspect]
     Active Substance: SOMATROPIN
     Dosage: 0.4 MG, QD WEEK 1: 0,3 MG, WEEK 2: 0,4MG, WEEK 3:  0,5 MG THEN 0,6MG PER DAY 7/
     Route: 058
     Dates: start: 20240409
  3. OMNITROPE [Suspect]
     Active Substance: SOMATROPIN
     Dosage: 0.6 MG, QD WEEK 1: 0,3 MG, WEEK 2: 0,4MG, WEEK 3:  0,5 MG THEN 0,6MG PER DAY 7/
     Route: 058
     Dates: start: 20240409

REACTIONS (3)
  - Injection site pain [Recovering/Resolving]
  - Product storage error [Unknown]
  - Liquid product physical issue [Unknown]

NARRATIVE: CASE EVENT DATE: 20250408
